FAERS Safety Report 6384654-9 (Version None)
Quarter: 2009Q4

REPORT INFORMATION
  Report Type: 
  Country: None (occurrence: None)
  Receive Date: 20091001
  Receipt Date: 20090923
  Transmission Date: 20100525
  Serious: Yes (Hospitalization)
  Sender: FDA-Public Use
  Company Number: PHHO2008US07901

PATIENT
  Sex: Male
  Weight: 86 kg

DRUGS (2)
  1. RAD 666 RAD+TAB+PTR [Suspect]
     Indication: HEART TRANSPLANT
     Dosage: 1.5 MG, BID
     Route: 048
     Dates: start: 20060523
  2. RAD 666 RAD+TAB+PTR [Suspect]
     Dosage: 0.5 MG, BID
     Route: 048

REACTIONS (5)
  - DEBRIDEMENT [None]
  - GROIN PAIN [None]
  - LYMPHOCELE [None]
  - SUPERINFECTION [None]
  - WOUND SECRETION [None]
